FAERS Safety Report 20137391 (Version 1)
Quarter: 2021Q4

REPORT INFORMATION
  Report Type: Report from Study
  Country: AU (occurrence: AU)
  Receive Date: 20211201
  Receipt Date: 20211201
  Transmission Date: 20220303
  Serious: Yes (Death, Life-Threatening)
  Sender: FDA-Public Use
  Company Number: AU-SERVIER-S21013120

PATIENT

DRUGS (22)
  1. IVOSIDENIB [Suspect]
     Active Substance: IVOSIDENIB
     Indication: Acute myeloid leukaemia
     Dates: start: 20211102, end: 20211117
  2. IVOSIDENIB [Suspect]
     Active Substance: IVOSIDENIB
     Indication: Myelodysplastic syndrome
  3. CYTARABINE [Suspect]
     Active Substance: CYTARABINE
     Indication: Acute myeloid leukaemia
     Dosage: 310 MG
     Route: 065
     Dates: start: 20211102, end: 20211109
  4. CYTARABINE [Suspect]
     Active Substance: CYTARABINE
     Indication: Myelodysplastic syndrome
  5. DAUNORUBICIN [Suspect]
     Active Substance: DAUNORUBICIN
     Indication: Acute myeloid leukaemia
     Dosage: 94 MG
     Route: 065
     Dates: start: 20211102, end: 20211104
  6. DAUNORUBICIN [Suspect]
     Active Substance: DAUNORUBICIN
     Indication: Myelodysplastic syndrome
  7. TN UNSPECIFIED [Concomitant]
     Indication: Product used for unknown indication
     Dosage: 300 MG, DAILY
     Route: 048
     Dates: start: 20211025
  8. TN UNSPECIFIED [Concomitant]
     Indication: Product used for unknown indication
     Dosage: 40 MG, DAILY
     Route: 042
     Dates: start: 20211109
  9. PIPERACILLIN SODIUM\TAZOBACTAM SODIUM [Concomitant]
     Active Substance: PIPERACILLIN SODIUM\TAZOBACTAM SODIUM
     Indication: Product used for unknown indication
     Dosage: 4.5 G, QID
     Route: 042
     Dates: start: 20211108
  10. TN UNSPECIFIED [Concomitant]
     Indication: Product used for unknown indication
     Dosage: 300 MG, DAILY
     Route: 048
     Dates: start: 20211102
  11. TN UNSPECIFIED [Concomitant]
     Indication: Product used for unknown indication
     Dosage: 8 MG, BID
     Route: 042
     Dates: start: 20211102
  12. PETERMAC MOUTHWASH [Concomitant]
     Indication: Product used for unknown indication
     Dosage: 1 SACHET, QD
     Route: 048
     Dates: start: 20211101
  13. TN UNSPECIFIED [Concomitant]
     Indication: Product used for unknown indication
     Dosage: 300 MG, DAILY
     Route: 048
     Dates: start: 20211028
  14. TN UNSPECIFIED [Concomitant]
     Indication: Product used for unknown indication
     Dosage: 1200 MG, BID
     Route: 048
     Dates: start: 20211106
  15. TN UNSPECIFIED [Concomitant]
     Indication: Product used for unknown indication
     Dosage: 5-10 MG, QID
     Route: 048
     Dates: start: 20211102
  16. TN UNSPECIFIED [Concomitant]
     Indication: Product used for unknown indication
     Dosage: 500 MG, DAILY
     Route: 048
     Dates: start: 20211028
  17. TN UNSPECIFIED [Concomitant]
     Indication: Product used for unknown indication
     Dosage: 150 MG, QD
     Route: 058
     Dates: start: 20211103
  18. TN UNSPECIFIED [Concomitant]
     Indication: Product used for unknown indication
     Dosage: 1 G, PRN
     Route: 048
     Dates: start: 20211108
  19. TN UNSPECIFIED [Concomitant]
     Indication: Product used for unknown indication
     Dosage: 40 MG, QD
     Route: 058
     Dates: start: 20211101
  20. TN UNSPECIFIED [Concomitant]
     Indication: Product used for unknown indication
     Dosage: 0.5 MG, PRN
     Route: 048
     Dates: start: 20211105
  21. TN UNSPECIFIED [Concomitant]
     Indication: Product used for unknown indication
     Dosage: 420 MG, SINGLE
     Route: 042
     Dates: start: 20211110
  22. TN UNSPECIFIED [Concomitant]
     Indication: Product used for unknown indication
     Dosage: UNK
     Route: 042
     Dates: start: 20211103

REACTIONS (2)
  - Fungaemia [Fatal]
  - Febrile neutropenia [Recovered/Resolved]

NARRATIVE: CASE EVENT DATE: 20211110
